FAERS Safety Report 9744833 (Version 2)
Quarter: 2013Q4

REPORT INFORMATION
  Report Type: Spontaneous
  Country: FR (occurrence: FR)
  Receive Date: 20131211
  Receipt Date: 20131211
  Transmission Date: 20140711
  Serious: Yes (Other)
  Sender: FDA-Public Use
  Company Number: FR-ROCHE-1294802

PATIENT
  Age: 62 Year
  Sex: Female

DRUGS (8)
  1. ZELBORAF [Suspect]
     Indication: METASTATIC MALIGNANT MELANOMA
     Route: 048
     Dates: start: 20130919
  2. ZELBORAF [Suspect]
     Route: 048
  3. ZELBORAF [Suspect]
     Route: 048
  4. ZELBORAF [Suspect]
     Route: 048
  5. LEVOTHYROX [Concomitant]
     Route: 048
  6. UVEDOSE [Concomitant]
     Route: 048
  7. ESOMEPRAZOLE [Concomitant]
     Route: 048
  8. CORTANCYL [Concomitant]
     Route: 048

REACTIONS (5)
  - Dysgeusia [Recovered/Resolved]
  - Rash [Recovered/Resolved]
  - Face oedema [Recovered/Resolved with Sequelae]
  - Sensory loss [Recovered/Resolved]
  - Arthralgia [Recovered/Resolved]
